FAERS Safety Report 7005294-4 (Version None)
Quarter: 2010Q3

REPORT INFORMATION
  Report Type: 
  Country: None (occurrence: None)
  Receive Date: 20100921
  Receipt Date: 20100908
  Transmission Date: 20110219
  Serious: Yes (Other)
  Sender: FDA-Public Use
  Company Number: US-ELI_LILLY_AND_COMPANY-US201009002943

PATIENT
  Sex: Male

DRUGS (4)
  1. EFFIENT [Suspect]
     Indication: CORONARY ARTERY DISEASE
     Dosage: 5 MG, DAILY (1/D)
     Dates: start: 20091201
  2. ASPIRIN [Concomitant]
     Dosage: 325 MG, DAILY (1/D)
  3. BETA BLOCKING AGENTS [Concomitant]
     Dosage: 5 MG, UNK
  4. PLAVIX [Concomitant]

REACTIONS (3)
  - CEREBROVASCULAR ACCIDENT [None]
  - HEMIPLEGIA [None]
  - OFF LABEL USE [None]
